FAERS Safety Report 4642305-5 (Version None)
Quarter: 2005Q2

REPORT INFORMATION
  Report Type: 
  Country: None (occurrence: None)
  Receive Date: 20050420
  Receipt Date: 20050406
  Transmission Date: 20051028
  Serious: No
  Sender: FDA-Public Use
  Company Number: 2005AP01374

PATIENT
  Age: 13 Year
  Sex: Male
  Weight: 34 kg

DRUGS (6)
  1. XYLOCAINE [Suspect]
     Indication: LOCAL ANAESTHESIA
     Dosage: 5 ML TP
     Route: 061
     Dates: start: 20050125, end: 20050125
  2. KETALAR [Suspect]
     Indication: ANAESTHESIA
     Dosage: 30 MG IV
     Route: 042
     Dates: start: 20050125, end: 20050125
  3. ATARAX [Suspect]
     Indication: ANAESTHESIA
     Dosage: 25 MG IV
     Route: 042
     Dates: start: 20050125, end: 20050125
  4. ATROPINE SULFATE [Suspect]
     Indication: ANAESTHESIA
     Dosage: 0.3 MG IV
     Route: 042
     Dates: start: 20050125, end: 20050125
  5. SOSEGON [Suspect]
     Indication: ANAESTHESIA
     Dosage: 15 MG IV
     Route: 042
     Dates: start: 20050125, end: 20050125
  6. DORMICUM [Suspect]
     Indication: ANAESTHESIA
     Dosage: 5 MG IV
     Route: 042
     Dates: start: 20050125, end: 20050125

REACTIONS (2)
  - LARYNGEAL OEDEMA [None]
  - PO2 DECREASED [None]
